FAERS Safety Report 6987477-2 (Version None)
Quarter: 2010Q3

REPORT INFORMATION
  Report Type: 
  Country: None (occurrence: None)
  Receive Date: 20100916
  Receipt Date: 20100914
  Transmission Date: 20110219
  Serious: Yes (Other)
  Sender: FDA-Public Use
  Company Number: ES-BRISTOL-MYERS SQUIBB COMPANY-15286198

PATIENT
  Age: 60 Year
  Sex: Male

DRUGS (1)
  1. ABILIFY [Suspect]
     Dosage: DECIDED TO INCREASE THE DOSE TO 15MG
     Dates: start: 20100819, end: 20100828

REACTIONS (4)
  - AGGRESSION [None]
  - DELIRIUM [None]
  - DELUSION [None]
  - SOLILOQUY [None]
